FAERS Safety Report 14285204 (Version 2)
Quarter: 2018Q1

REPORT INFORMATION
  Report Type: Spontaneous
  Country: JP (occurrence: JP)
  Receive Date: 20171214
  Receipt Date: 20180223
  Transmission Date: 20180509
  Serious: Yes (Hospitalization, Other)
  Sender: FDA-Public Use
  Company Number: JP-CONCORDIA PHARMACEUTICALS INC.-E2B_00008733

PATIENT
  Age: 76 Year
  Sex: Female

DRUGS (6)
  1. PREDNISOLONE. [Suspect]
     Active Substance: PREDNISOLONE
     Indication: ASTHMA
  2. MEROPENEM. [Suspect]
     Active Substance: MEROPENEM
     Indication: TUBERCULOSIS
  3. PREDNISOLONE. [Suspect]
     Active Substance: PREDNISOLONE
     Indication: ASTHMA
     Route: 048
  4. AMPICILLIN/SULBACTAM [Concomitant]
     Active Substance: AMPICILLIN SODIUM\SULBACTAM SODIUM
     Indication: ASTHMA
  5. FLUTICASONE PROPIONATE. [Suspect]
     Active Substance: FLUTICASONE PROPIONATE
     Indication: ASTHMA
     Route: 055
  6. PREDNISOLONE. [Suspect]
     Active Substance: PREDNISOLONE

REACTIONS (3)
  - Rash [Unknown]
  - Tuberculosis [Recovered/Resolved]
  - Pruritus [Unknown]
